FAERS Safety Report 25811807 (Version 1)
Quarter: 2025Q3

REPORT INFORMATION
  Report Type: Spontaneous
  Country: IN (occurrence: IN)
  Receive Date: 20250917
  Receipt Date: 20250917
  Transmission Date: 20251021
  Serious: Yes (Life-Threatening, Hospitalization)
  Sender: MYLAN
  Company Number: IN-MYLANLABS-2025M1078124

PATIENT
  Age: 77 Year
  Sex: Male

DRUGS (38)
  1. TRAMADOL [Interacting]
     Active Substance: TRAMADOL
     Indication: Procedural pain
     Dosage: 75 MILLIGRAM, BID
  2. TRAMADOL [Interacting]
     Active Substance: TRAMADOL
     Dosage: 75 MILLIGRAM, BID
  3. TRAMADOL [Interacting]
     Active Substance: TRAMADOL
     Dosage: 75 MILLIGRAM, BID
     Route: 042
  4. TRAMADOL [Interacting]
     Active Substance: TRAMADOL
     Dosage: 75 MILLIGRAM, BID
     Route: 042
  5. TRAMADOL [Interacting]
     Active Substance: TRAMADOL
     Dosage: 100 MILLIGRAM, BID
  6. TRAMADOL [Interacting]
     Active Substance: TRAMADOL
     Dosage: 100 MILLIGRAM, BID
  7. TRAMADOL [Interacting]
     Active Substance: TRAMADOL
     Dosage: 100 MILLIGRAM, BID
     Route: 042
  8. TRAMADOL [Interacting]
     Active Substance: TRAMADOL
     Dosage: 100 MILLIGRAM, BID
     Route: 042
  9. TRAMADOL [Interacting]
     Active Substance: TRAMADOL
     Indication: Arthralgia
  10. TRAMADOL [Interacting]
     Active Substance: TRAMADOL
     Route: 065
  11. TRAMADOL [Interacting]
     Active Substance: TRAMADOL
     Route: 065
  12. TRAMADOL [Interacting]
     Active Substance: TRAMADOL
  13. BUPRENORPHINE [Interacting]
     Active Substance: BUPRENORPHINE
     Indication: Procedural pain
     Dosage: 10 MICROGRAM, QH (SKIN PATCH APPLIED ON THE LEFT THIGH)
  14. BUPRENORPHINE [Interacting]
     Active Substance: BUPRENORPHINE
     Dosage: 10 MICROGRAM, QH (SKIN PATCH APPLIED ON THE LEFT THIGH)
     Route: 061
  15. BUPRENORPHINE [Interacting]
     Active Substance: BUPRENORPHINE
     Dosage: 10 MICROGRAM, QH (SKIN PATCH APPLIED ON THE LEFT THIGH)
     Route: 061
  16. BUPRENORPHINE [Interacting]
     Active Substance: BUPRENORPHINE
     Dosage: 10 MICROGRAM, QH (SKIN PATCH APPLIED ON THE LEFT THIGH)
  17. VILDAGLIPTIN [Concomitant]
     Active Substance: VILDAGLIPTIN
     Indication: Type 2 diabetes mellitus
  18. VILDAGLIPTIN [Concomitant]
     Active Substance: VILDAGLIPTIN
     Route: 048
  19. VILDAGLIPTIN [Concomitant]
     Active Substance: VILDAGLIPTIN
     Route: 048
  20. VILDAGLIPTIN [Concomitant]
     Active Substance: VILDAGLIPTIN
  21. METFORMIN [Concomitant]
     Active Substance: METFORMIN HYDROCHLORIDE
     Indication: Type 2 diabetes mellitus
     Dosage: 1000 MILLIGRAM, BID
  22. METFORMIN [Concomitant]
     Active Substance: METFORMIN HYDROCHLORIDE
     Dosage: 1000 MILLIGRAM, BID
     Route: 065
  23. METFORMIN [Concomitant]
     Active Substance: METFORMIN HYDROCHLORIDE
     Dosage: 1000 MILLIGRAM, BID
     Route: 065
  24. METFORMIN [Concomitant]
     Active Substance: METFORMIN HYDROCHLORIDE
     Dosage: 1000 MILLIGRAM, BID
  25. PREGABALIN [Concomitant]
     Active Substance: PREGABALIN
     Indication: Procedural pain
     Dosage: 75 MILLIGRAM, QD
  26. PREGABALIN [Concomitant]
     Active Substance: PREGABALIN
     Indication: Arthralgia
     Dosage: 75 MILLIGRAM, QD
     Route: 065
  27. PREGABALIN [Concomitant]
     Active Substance: PREGABALIN
     Dosage: 75 MILLIGRAM, QD
     Route: 065
  28. PREGABALIN [Concomitant]
     Active Substance: PREGABALIN
     Dosage: 75 MILLIGRAM, QD
  29. PREGABALIN [Concomitant]
     Active Substance: PREGABALIN
     Indication: Procedural pain
     Dosage: 75 MILLIGRAM, HS (AT NIGHT TIME)
  30. PREGABALIN [Concomitant]
     Active Substance: PREGABALIN
     Indication: Arthralgia
     Dosage: 75 MILLIGRAM, HS (AT NIGHT TIME)
     Route: 065
  31. PREGABALIN [Concomitant]
     Active Substance: PREGABALIN
     Dosage: 75 MILLIGRAM, HS (AT NIGHT TIME)
     Route: 065
  32. PREGABALIN [Concomitant]
     Active Substance: PREGABALIN
     Dosage: 75 MILLIGRAM, HS (AT NIGHT TIME)
  33. ACETAMINOPHEN [Concomitant]
     Active Substance: ACETAMINOPHEN
     Indication: Procedural pain
     Dosage: 1 GRAM, Q6H
  34. ACETAMINOPHEN [Concomitant]
     Active Substance: ACETAMINOPHEN
     Dosage: 1 GRAM, Q6H
  35. ACETAMINOPHEN [Concomitant]
     Active Substance: ACETAMINOPHEN
     Indication: Arthralgia
     Dosage: 650 MILLIGRAM, QD
  36. ACETAMINOPHEN [Concomitant]
     Active Substance: ACETAMINOPHEN
     Dosage: 650 MILLIGRAM, QD
     Route: 065
  37. ACETAMINOPHEN [Concomitant]
     Active Substance: ACETAMINOPHEN
     Dosage: 650 MILLIGRAM, QD
     Route: 065
  38. ACETAMINOPHEN [Concomitant]
     Active Substance: ACETAMINOPHEN
     Dosage: 650 MILLIGRAM, QD

REACTIONS (8)
  - Toxicity to various agents [Recovered/Resolved]
  - Accidental overdose [Recovered/Resolved]
  - Loss of consciousness [Recovered/Resolved]
  - Labelled drug-drug interaction medication error [Recovered/Resolved]
  - Labelled drug-drug interaction issue [Recovered/Resolved]
  - Hypoventilation [Recovered/Resolved]
  - Respiratory depression [Recovered/Resolved]
  - Respiratory acidosis [Recovered/Resolved]
